FAERS Safety Report 4781717-6 (Version None)
Quarter: 2005Q3

REPORT INFORMATION
  Report Type: 
  Country: None (occurrence: None)
  Receive Date: 20050927
  Receipt Date: 20050914
  Transmission Date: 20060218
  Serious: Yes (Death)
  Sender: FDA-Public Use
  Company Number: 2005129128

PATIENT
  Age: 32 Year
  Sex: 0

DRUGS (2)
  1. DIPHENHYDRAMINE HCL [Suspect]
     Indication: SUICIDE ATTEMPT
  2. PSEUDOEPHEDRINE (DRUG, UNSPECIFIED) (PSEUDOEPHEDRINE) [Suspect]
     Indication: SUICIDE ATTEMPT

REACTIONS (3)
  - CARDIO-RESPIRATORY ARREST [None]
  - COMPLETED SUICIDE [None]
  - OVERDOSE [None]
